FAERS Safety Report 5369868-9 (Version None)
Quarter: 2007Q2

REPORT INFORMATION
  Report Type: 
  Country: None (occurrence: None)
  Receive Date: 20070621
  Receipt Date: 20070606
  Transmission Date: 20071010
  Serious: Yes (Life-Threatening, Hospitalization, Disabling, Other)
  Sender: FDA-Public Use
  Company Number: 2007RR-07534

PATIENT
  Age: 71 Year
  Sex: Male
  Weight: 104 kg

DRUGS (9)
  1. SIMVASTATIN [Suspect]
     Indication: DRUG USE FOR UNKNOWN INDICATION
     Dosage: 20 MG, QD, ORAL
     Route: 048
     Dates: start: 20000101, end: 20070423
  2. AVANDIA [Suspect]
     Indication: DIABETES MELLITUS NON-INSULIN-DEPENDENT
     Dosage: 4 MG, BID, ORAL
     Route: 048
     Dates: start: 20050411, end: 20070423
  3. ASPIRIN [Concomitant]
  4. ATENOLOL [Concomitant]
  5. BISOPROLOL (BISOPROLOL) UNKNOWN [Concomitant]
  6. FUROSEMIDE [Concomitant]
  7. METFORMIN (METFORMIN) UNKNOWN [Concomitant]
  8. DICLOFENAC SODIUM [Concomitant]
  9. LISINOPRIL [Concomitant]

REACTIONS (9)
  - ABDOMINAL PAIN [None]
  - ACUTE CORONARY SYNDROME [None]
  - ATRIAL FIBRILLATION [None]
  - DISEASE RECURRENCE [None]
  - HYPERHIDROSIS [None]
  - INTESTINAL ISCHAEMIA [None]
  - LEFT VENTRICULAR FAILURE [None]
  - PANCREATITIS ACUTE [None]
  - PULMONARY OEDEMA [None]
